FAERS Safety Report 23054107 (Version 2)
Quarter: 2023Q4

REPORT INFORMATION
  Report Type: Spontaneous
  Country: CA (occurrence: CA)
  Receive Date: 20231011
  Receipt Date: 20231204
  Transmission Date: 20240109
  Serious: Yes (Other)
  Sender: FDA-Public Use
  Company Number: CA-AMGEN-CANSP2023178156

PATIENT
  Age: 33 Year
  Sex: Male

DRUGS (1)
  1. APREMILAST [Suspect]
     Active Substance: APREMILAST
     Indication: Behcet^s syndrome
     Dosage: UNK
     Route: 065

REACTIONS (11)
  - Behcet^s syndrome [Unknown]
  - Latent tuberculosis [Unknown]
  - Therapy non-responder [Unknown]
  - Pyrexia [Unknown]
  - Eye movement disorder [Unknown]
  - Dysarthria [Unknown]
  - Muscle spasticity [Unknown]
  - Hyperreflexia [Unknown]
  - Asthenia [Unknown]
  - Gait disturbance [Unknown]
  - Hepatitis B core antibody positive [Unknown]
